FAERS Safety Report 24374201 (Version 1)
Quarter: 2024Q3

REPORT INFORMATION
  Report Type: Spontaneous
  Country: US (occurrence: None)
  Receive Date: 20240927
  Receipt Date: 20240927
  Transmission Date: 20241016
  Serious: Yes (Hospitalization)
  Sender: Public
  Company Number: None

PATIENT
  Age: 50 Year
  Sex: Female

DRUGS (25)
  1. MYCOPHENOLIC ACID [Suspect]
     Active Substance: MYCOPHENOLIC ACID
     Indication: Renal transplant
     Dosage: 500 MG TWICE A DAY ORAL
     Route: 048
     Dates: start: 20220725
  2. MYCOPHENOLIC ACID [Suspect]
     Active Substance: MYCOPHENOLIC ACID
     Indication: Liver transplant
  3. TACROLIMUS [Suspect]
     Active Substance: TACROLIMUS
     Indication: Renal transplant
     Dosage: 4 MG TWICE A DAY ?
     Dates: start: 20230605
  4. TACROLIMUS [Suspect]
     Active Substance: TACROLIMUS
     Indication: Liver transplant
  5. PREDNISONE [Concomitant]
     Active Substance: PREDNISONE
     Dates: start: 20220429
  6. URSODIOL [Concomitant]
     Active Substance: URSODIOL
     Dates: start: 20230308
  7. ASPIRIN [Concomitant]
     Active Substance: ASPIRIN
     Dates: start: 20221025
  8. Vitamin D 50,000 IU [Concomitant]
     Dates: start: 20240707
  9. Vitamin D 2,000 IU [Concomitant]
     Dates: start: 20240926
  10. Bactrim 400-80 mg [Concomitant]
     Dates: start: 20221019, end: 20230406
  11. BACTRIM [Concomitant]
     Active Substance: SULFAMETHOXAZOLE\TRIMETHOPRIM
     Dates: start: 20231006, end: 20231009
  12. QUETIAPINE [Concomitant]
     Active Substance: QUETIAPINE
     Dates: start: 20221219, end: 20230620
  13. OMEPRAZOLE [Concomitant]
     Active Substance: OMEPRAZOLE
     Dates: start: 20240729
  14. MISOPROSTOL [Concomitant]
     Active Substance: MISOPROSTOL
     Dates: start: 20240926
  15. METHYLPHENIDATE [Concomitant]
     Active Substance: METHYLPHENIDATE
     Dates: start: 20231109
  16. Lokelma 10 mg [Concomitant]
     Dates: start: 20240906
  17. KETOCONAZOLE [Concomitant]
     Active Substance: KETOCONAZOLE
     Dates: start: 20231129
  18. FAMOTIDINE [Concomitant]
     Active Substance: FAMOTIDINE
     Dates: start: 20220926, end: 20221026
  19. ESCITALOPRAM [Concomitant]
     Active Substance: ESCITALOPRAM OXALATE
     Dates: start: 20230724, end: 20240312
  20. ESCITALOPRAM [Concomitant]
     Active Substance: ESCITALOPRAM OXALATE
     Dates: start: 20220926, end: 20230719
  21. ESCITALOPRAM OXALATE [Concomitant]
     Active Substance: ESCITALOPRAM OXALATE
     Dates: start: 20240313, end: 20240621
  22. DOXYCYCLINE [Concomitant]
     Active Substance: DOXYCYCLINE
     Dates: start: 20240718, end: 20240725
  23. CIPROFLOXACIN [Concomitant]
     Active Substance: CIPROFLOXACIN
     Dates: start: 20230124, end: 20231103
  24. Ciprofloxacin 0.3% ophthalmic solution [Concomitant]
     Dates: start: 20230906, end: 20230920
  25. Amox-Clav 875mg-125mg [Concomitant]
     Dates: start: 20230810, end: 20230815

REACTIONS (1)
  - Biloma infected [None]
